FAERS Safety Report 5002654-8 (Version None)
Quarter: 2006Q2

REPORT INFORMATION
  Report Type: 
  Country: None (occurrence: None)
  Receive Date: 20060510
  Receipt Date: 20060503
  Transmission Date: 20061013
  Serious: Yes (Hospitalization)
  Sender: FDA-Public Use
  Company Number: 2006-00956

PATIENT
  Age: 59 Year
  Sex: Female
  Weight: 81 kg

DRUGS (2)
  1. VELCADE [Suspect]
     Indication: MULTIPLE MYELOMA
     Dosage: 1.30 MG/M2, INTRAVENOUS
     Route: 042
     Dates: start: 20050920, end: 20060328
  2. DOXIL/CAELYX (DOXORUBICIN HYDROCHLORIDE) INJECTION [Suspect]
     Indication: MULTIPLE MYELOMA
     Dosage: 30.00 MG/M2, INTRAVENOUS
     Route: 042
     Dates: start: 20050920

REACTIONS (5)
  - ANOREXIA [None]
  - FATIGUE [None]
  - NERVOUS SYSTEM DISORDER [None]
  - PAIN IN EXTREMITY [None]
  - TREMOR [None]
